FAERS Safety Report 15183843 (Version 1)
Quarter: 2018Q3

REPORT INFORMATION
  Report Type: Spontaneous
  Country: JP (occurrence: JP)
  Receive Date: 20180723
  Receipt Date: 20180723
  Transmission Date: 20181010
  Serious: Yes (Hospitalization)
  Sender: FDA-Public Use
  Company Number: JP-ALLERGAN-1835866US

PATIENT
  Age: 10 Decade
  Sex: Male

DRUGS (1)
  1. MEMANTINE HCL ? BP [Suspect]
     Active Substance: MEMANTINE
     Indication: DEMENTIA
     Dosage: 5 MG, QD
     Route: 048

REACTIONS (1)
  - Altered state of consciousness [Recovered/Resolved]
